FAERS Safety Report 18275439 (Version 1)
Quarter: 2020Q3

REPORT INFORMATION
  Report Type: Spontaneous
  Country: FR (occurrence: FR)
  Receive Date: 20200916
  Receipt Date: 20200916
  Transmission Date: 20201103
  Serious: Yes (Death)
  Sender: FDA-Public Use
  Company Number: FR-UCBSA-2020036756

PATIENT
  Age: 3 Year
  Sex: Male
  Weight: 12 kg

DRUGS (11)
  1. KEPPRA [Suspect]
     Active Substance: LEVETIRACETAM
     Indication: EPILEPTIC ENCEPHALOPATHY
     Dosage: 250 MILLIGRAM, BID (MORNING AND NIGHT)
     Route: 048
     Dates: start: 201704
  2. LAMICTAL [Suspect]
     Active Substance: LAMOTRIGINE
     Indication: EPILEPTIC ENCEPHALOPATHY
     Dosage: 75 MG AND 50 MG AT NIGHT
     Route: 048
     Dates: start: 201707
  3. INEXIUM [ESOMEPRAZOLE MAGNESIUM] [Concomitant]
     Active Substance: ESOMEPRAZOLE MAGNESIUM
     Indication: PRODUCT USED FOR UNKNOWN INDICATION
     Dosage: UNK
  4. FORLAX [Concomitant]
     Active Substance: POLYETHYLENE GLYCOL 4000
     Indication: PRODUCT USED FOR UNKNOWN INDICATION
     Dosage: UNK
  5. CBD OIL [Suspect]
     Active Substance: CANNABIDIOL\HERBALS
     Indication: EPILEPTIC ENCEPHALOPATHY
     Dosage: 100 MG, BID (16.6 MG/KG/QD)
     Route: 048
     Dates: start: 20190628
  6. MELATONIN [Concomitant]
     Active Substance: MELATONIN
     Indication: PRODUCT USED FOR UNKNOWN INDICATION
     Dosage: 4 MG, QD (AT NIGHT)
  7. PULMICORT TURBUHALER [Concomitant]
     Active Substance: BUDESONIDE
     Indication: PRODUCT USED FOR UNKNOWN INDICATION
     Dosage: 1 DOSAGE FORM, AS NEEDED (PRN)
  8. URBANYL [Suspect]
     Active Substance: CLOBAZAM
     Indication: EPILEPTIC ENCEPHALOPATHY
     Dosage: 5 MILLIGRAM, QD (AT NIGHT)
     Route: 048
     Dates: start: 201704
  9. SCOPODERM [HYOSCINE HYDROBROMIDE] [Concomitant]
     Indication: PRODUCT USED FOR UNKNOWN INDICATION
     Dosage: 0.5MG EVERY 3 DAYS
     Route: 062
  10. VENTOLIN [Concomitant]
     Active Substance: ALBUTEROL SULFATE
     Indication: PRODUCT USED FOR UNKNOWN INDICATION
     Dosage: 1 DOSAGE FORM, AS NEEDED (PRN)
  11. ENEMA (SODIUM PHOSPHATE, DIBASIC\SODIUM PHOSPHATE, MONOBASIC) [Concomitant]
     Active Substance: SODIUM PHOSPHATE, DIBASIC\SODIUM PHOSPHATE, MONOBASIC
     Indication: PRODUCT USED FOR UNKNOWN INDICATION
     Dosage: 1 DOSAGE FORM APPROXIMATELY 1 PER DAY
     Route: 054

REACTIONS (3)
  - Cardio-respiratory arrest [Fatal]
  - Epilepsy [Fatal]
  - Seizure [Recovered/Resolved]

NARRATIVE: CASE EVENT DATE: 201910
